FAERS Safety Report 8906141 (Version 3)
Quarter: 2012Q4

REPORT INFORMATION
  Report Type: 
  Country: US (occurrence: US)
  Receive Date: 20121110
  Receipt Date: 20121212
  Transmission Date: 20130627
  Serious: Yes (Hospitalization)
  Sender: FDA-Public Use
  Company Number: US-US-EMD SERONO, INC.-7172520

PATIENT
  Age: 55 None
  Sex: Female

DRUGS (2)
  1. REBIF [Suspect]
     Indication: MULTIPLE SCLEROSIS
     Route: 058
     Dates: start: 20040920, end: 201209
  2. REBIF [Suspect]
     Route: 058
     Dates: start: 201209

REACTIONS (3)
  - Ankle fracture [Recovering/Resolving]
  - Multiple sclerosis relapse [Recovering/Resolving]
  - Fall [Recovering/Resolving]
